FAERS Safety Report 19844559 (Version 1)
Quarter: 2021Q3

REPORT INFORMATION
  Report Type: Report from Study
  Country: US (occurrence: US)
  Receive Date: 20210917
  Receipt Date: 20210917
  Transmission Date: 20211014
  Serious: Yes (Hospitalization)
  Sender: FDA-Public Use
  Company Number: US-GILEAD-2021-0548369

PATIENT
  Age: 48 Year
  Sex: Male

DRUGS (10)
  1. VITAMINS NOS [Concomitant]
     Active Substance: VITAMINS
  2. AZITHROMYCIN ANHYDROUS. [Concomitant]
     Active Substance: AZITHROMYCIN ANHYDROUS
  3. NASONEX [Concomitant]
     Active Substance: MOMETASONE FUROATE
  4. CREON [Concomitant]
     Active Substance: PANCRELIPASE AMYLASE\PANCRELIPASE LIPASE\PANCRELIPASE PROTEASE
  5. ALLOPURINOL. [Concomitant]
     Active Substance: ALLOPURINOL
  6. URSODIOL. [Concomitant]
     Active Substance: URSODIOL
  7. KEFLEX [Concomitant]
     Active Substance: CEPHALEXIN
  8. AZTREONAM LYSINE [Suspect]
     Active Substance: AZTREONAM LYSINE
     Indication: PSEUDOMONAS INFECTION
  9. HUMALOG [Concomitant]
     Active Substance: INSULIN LISPRO
  10. AZTREONAM LYSINE [Suspect]
     Active Substance: AZTREONAM LYSINE
     Indication: CYSTIC FIBROSIS
     Dosage: 75 MG, TID EVERY OTHER MONTH
     Route: 055
     Dates: start: 2015

REACTIONS (4)
  - Back pain [Not Recovered/Not Resolved]
  - Post concussion syndrome [Not Recovered/Not Resolved]
  - Arthralgia [Not Recovered/Not Resolved]
  - Road traffic accident [Not Recovered/Not Resolved]

NARRATIVE: CASE EVENT DATE: 20210812
